FAERS Safety Report 6985499 (Version 3)
Quarter: 2014Q3

REPORT INFORMATION
  Report Type: Report from Study
  Country: US (occurrence: US)
  Receive Date: 20090504
  Receipt Date: 20140706
  Transmission Date: 20150326
  Serious: Yes (Other)
  Sender: FDA-Public Use
  Company Number: US-ALEXION-A200900025

PATIENT

DRUGS (2)
  1. SOLIRIS [Suspect]
     Active Substance: ECULIZUMAB
     Indication: PAROXYSMAL NOCTURNAL HAEMOGLOBINURIA
     Dosage: 600 MG, QW
     Route: 042
     Dates: start: 20080628, end: 20080718
  2. SOLIRIS [Suspect]
     Active Substance: ECULIZUMAB
     Dosage: 900 MG, Q2W
     Route: 042
     Dates: start: 20080725

REACTIONS (3)
  - Embolism [Unknown]
  - Musculoskeletal pain [Recovered/Resolved]
  - Meningitis [Unknown]

NARRATIVE: CASE EVENT DATE: 200811
